FAERS Safety Report 4840039-5 (Version None)
Quarter: 2005Q4

REPORT INFORMATION
  Report Type: 
  Country: None (occurrence: None)
  Receive Date: 20051125
  Receipt Date: 20051110
  Transmission Date: 20060501
  Serious: Yes (Hospitalization)
  Sender: FDA-Public Use
  Company Number: FR-2005-023586

PATIENT
  Age: 81 Year
  Sex: Female
  Weight: 86 kg

DRUGS (14)
  1. ULTRAVIST 300 [Suspect]
     Indication: ABDOMEN SCAN
     Dosage: I DF, 1 DOSE; INTRAVENOUS
     Route: 042
     Dates: start: 20050725, end: 20050725
  2. ALDACTONE [Concomitant]
  3. AMLODIPINE BESYLATE [Concomitant]
  4. LASILIX [Concomitant]
  5. NITRODERM [Concomitant]
  6. PREVISCAN (FLUINDIONE) [Concomitant]
  7. TRAMADOL HCL [Concomitant]
  8. DAFALGAN [Concomitant]
  9. FERO GRAD LP VITAMINE C 500 (FERROUS SULFATE EXSICCATED) [Concomitant]
  10. MOGADON (NITRAZEMPAM) [Concomitant]
  11. IMOVANE (ZOPICLONE) [Concomitant]
  12. FENOTEROL [Concomitant]
  13. SOLUPRED (PREDNISOLONE SODIUM SULFOBENZOATE) [Concomitant]
  14. VIRLIX (CETIRIZINE HYDROCHLORIDE) [Concomitant]

REACTIONS (16)
  - ALANINE AMINOTRANSFERASE INCREASED [None]
  - ASPARTATE AMINOTRANSFERASE INCREASED [None]
  - BETA 2 MICROGLOBULIN INCREASED [None]
  - BLOOD IMMUNOGLOBULIN A DECREASED [None]
  - BLOOD IMMUNOGLOBULIN M DECREASED [None]
  - CUTANEOUS VASCULITIS [None]
  - GAMMA-GLUTAMYLTRANSFERASE INCREASED [None]
  - INFLAMMATION [None]
  - INTERNATIONAL NORMALISED RATIO DECREASED [None]
  - PROTEUS INFECTION [None]
  - PROTHROMBIN LEVEL INCREASED [None]
  - RENAL FAILURE [None]
  - SERUM FERRITIN INCREASED [None]
  - SKIN REACTION [None]
  - TACHYPNOEA [None]
  - URINARY TRACT INFECTION [None]
